FAERS Safety Report 6259930-0 (Version None)
Quarter: 2009Q3

REPORT INFORMATION
  Report Type: 
  Country: None (occurrence: None)
  Receive Date: 20090708
  Receipt Date: 20090701
  Transmission Date: 20100115
  Serious: Yes (Other)
  Sender: FDA-Public Use
  Company Number: PHEH2009US05901

PATIENT
  Sex: Male
  Weight: 73.016 kg

DRUGS (18)
  1. RECLAST [Suspect]
     Indication: OSTEOPOROSIS
     Dosage: 5 MG, UNK
     Route: 042
     Dates: start: 20090604
  2. TEGRETOL [Concomitant]
     Indication: CONVULSION
     Dosage: UNK
     Dates: start: 20040101
  3. CALCIUM CARBONATE W/VITAMIN D NOS [Concomitant]
     Dosage: 100MG/400 1 DAILY
     Route: 048
  4. DIFLUCAN [Concomitant]
     Dosage: 200 MG, QD
     Route: 048
  5. EXELON [Concomitant]
     Dosage: 1.5 MG 1 PO AS DIRECTED
     Route: 048
  6. FOLIC ACID [Concomitant]
     Dosage: 1 MG, QD
     Route: 048
  7. FUROSEMIDE [Concomitant]
     Dosage: 40 MG 1 PO AS DIRECTED
  8. GABAPENTIN [Concomitant]
     Dosage: 300 MG, QD
     Route: 048
  9. GLIPIZIDE [Concomitant]
     Dosage: 5 MG, QD
     Route: 048
  10. JANTOVEN [Concomitant]
     Dosage: 5 MG, QD
     Route: 048
  11. LISINOPRIL [Concomitant]
     Dosage: 2.5 MG, QD
     Route: 048
  12. PHENOBARBITAL [Concomitant]
     Dosage: 15 MG, QD
     Route: 048
  13. SERTRALINE [Concomitant]
     Dosage: 50 MG, QD
     Route: 048
  14. SIMVASTATIN [Concomitant]
     Dosage: 5 MG, QD
     Route: 048
  15. SYNTHROID [Concomitant]
     Dosage: 50 UG, QD
     Route: 048
  16. NITROGLYCERIN [Concomitant]
  17. PROZAC [Concomitant]
  18. CARVEDILOL [Concomitant]
     Dosage: 3.125 MG, BID
     Route: 048

REACTIONS (12)
  - ABASIA [None]
  - ASTHENIA [None]
  - BLOOD GLUCOSE INCREASED [None]
  - BLOOD PRESSURE SYSTOLIC INCREASED [None]
  - CARDIAC MURMUR [None]
  - DECREASED APPETITE [None]
  - FATIGUE [None]
  - NAUSEA [None]
  - PYREXIA [None]
  - TREMOR [None]
  - UROBILIN URINE PRESENT [None]
  - VOMITING [None]
